FAERS Safety Report 16143743 (Version 1)
Quarter: 2019Q2

REPORT INFORMATION
  Report Type: Spontaneous
  Country: US (occurrence: RU)
  Receive Date: 20190401
  Receipt Date: 20190401
  Transmission Date: 20190711
  Serious: Yes (Hospitalization, Other)
  Sender: FDA-Public Use
  Company Number: US-BRISTOL-MYERS SQUIBB COMPANY-BMS-2019-029056

PATIENT
  Age: 52 Year
  Sex: Male
  Weight: 68 kg

DRUGS (5)
  1. DAKLINZA [Suspect]
     Active Substance: DACLATASVIR
     Indication: CHRONIC HEPATITIS C
     Dosage: 1 DOSAGE FORM
     Route: 065
     Dates: start: 20181121
  2. SOVALDI [Suspect]
     Active Substance: SOFOSBUVIR
     Indication: CHRONIC HEPATITIS C
     Dosage: 400 MILLIGRAM, QD
     Route: 065
     Dates: start: 20181121
  3. RIBAVIRIN. [Suspect]
     Active Substance: RIBAVIRIN
     Indication: CHRONIC HEPATITIS C
     Dosage: 100 MILLIGRAM
     Route: 065
     Dates: start: 20181121
  4. ANAPRILIN [Concomitant]
     Active Substance: PROPRANOLOL HYDROCHLORIDE
     Indication: PRODUCT USED FOR UNKNOWN INDICATION
     Dosage: UNK
     Route: 065
  5. ESOMEPRAZOLE. [Concomitant]
     Active Substance: ESOMEPRAZOLE MAGNESIUM
     Indication: PRODUCT USED FOR UNKNOWN INDICATION
     Dosage: 40 MILLIGRAM, QD
     Route: 040

REACTIONS (11)
  - Memory impairment [Unknown]
  - Nausea [Unknown]
  - Rash [Unknown]
  - Disturbance in attention [Unknown]
  - Haematochezia [Unknown]
  - Therapy non-responder [Unknown]
  - Hepatocellular carcinoma [Unknown]
  - Abdominal pain upper [Unknown]
  - Asthenia [Unknown]
  - Dyspepsia [Unknown]
  - Dysgeusia [Unknown]

NARRATIVE: CASE EVENT DATE: 201902
